FAERS Safety Report 16571129 (Version 1)
Quarter: 2019Q3

REPORT INFORMATION
  Report Type: Spontaneous
  Country: US (occurrence: US)
  Receive Date: 20190712
  Receipt Date: 20190712
  Transmission Date: 20191004
  Serious: Yes (Life-Threatening)
  Sender: FDA-Public Use
  Company Number: None

PATIENT
  Age: 46 Year
  Sex: Male
  Weight: 45 kg

DRUGS (3)
  1. JARDIANCE [Suspect]
     Active Substance: EMPAGLIFLOZIN
     Indication: DIABETES MELLITUS
     Route: 048
     Dates: start: 20190322, end: 20190622
  2. INSULIN [Concomitant]
     Active Substance: INSULIN NOS
  3. DAILY VIATMIN [Concomitant]

REACTIONS (2)
  - Diabetic coma [None]
  - Seizure [None]

NARRATIVE: CASE EVENT DATE: 20190407
